FAERS Safety Report 21499552 (Version 5)
Quarter: 2023Q1

REPORT INFORMATION
  Report Type: Report from Study
  Country: IN (occurrence: IN)
  Receive Date: 20221024
  Receipt Date: 20230118
  Transmission Date: 20230418
  Serious: Yes (Hospitalization)
  Sender: FDA-Public Use
  Company Number: IN-BRISTOL-MYERS SQUIBB COMPANY-2022-124149

PATIENT
  Age: 52 Year
  Sex: Male
  Weight: 75 kg

DRUGS (10)
  1. IPILIMUMAB [Suspect]
     Active Substance: IPILIMUMAB
     Indication: Renal cell carcinoma
     Dates: start: 20220727, end: 20220727
  2. IPILIMUMAB [Suspect]
     Active Substance: IPILIMUMAB
     Dates: start: 20220818, end: 20220818
  3. DEXAMETHASONE [Concomitant]
     Active Substance: DEXAMETHASONE
     Indication: Adverse event
     Route: 042
     Dates: start: 20221015, end: 20221018
  4. NEBILONG [Concomitant]
     Indication: Product used for unknown indication
     Route: 048
     Dates: start: 20220428, end: 20221015
  5. NEBILONG [Concomitant]
  6. TRAMADOL [Concomitant]
     Active Substance: TRAMADOL
     Indication: Adverse event
     Route: 048
     Dates: start: 20221015, end: 20221016
  7. GABAPENTIN [Concomitant]
     Active Substance: GABAPENTIN
     Indication: Adverse event
     Route: 048
     Dates: start: 20221015, end: 20221015
  8. HYDROXYZINE HYDROCHLORIDE [Concomitant]
     Active Substance: HYDROXYZINE HYDROCHLORIDE
     Indication: Adverse event
     Route: 048
     Dates: start: 20220803, end: 20221015
  9. FLUCONAZOLE [Concomitant]
     Active Substance: FLUCONAZOLE
     Indication: Adverse event
     Route: 048
     Dates: start: 20220831, end: 20221018
  10. NULONG-TRIO [Concomitant]
     Indication: Product used for unknown indication
     Dosage: 01
     Route: 048
     Dates: start: 20220428, end: 20221015

REACTIONS (1)
  - Stomatitis [Recovered/Resolved]

NARRATIVE: CASE EVENT DATE: 20221015
